FAERS Safety Report 9002173 (Version 1)
Quarter: 2013Q1

REPORT INFORMATION
  Report Type: Spontaneous
  Country: US (occurrence: US)
  Receive Date: 20130107
  Receipt Date: 20130107
  Transmission Date: 20140127
  Serious: Yes (Death, Other)
  Sender: FDA-Public Use
  Company Number: US-PFIZER INC-2013005122

PATIENT
  Age: 104 Year
  Sex: Female

DRUGS (2)
  1. NORVASC [Suspect]
     Indication: HYPERTENSION
     Dosage: 5 MG, 1X/DAY
     Route: 048
     Dates: end: 2011
  2. LIPITOR [Suspect]
     Dosage: UNK

REACTIONS (3)
  - Death [Fatal]
  - Femur fracture [Unknown]
  - Fall [Unknown]
